FAERS Safety Report 7130656-4 (Version None)
Quarter: 2010Q4

REPORT INFORMATION
  Report Type: 
  Country: None (occurrence: None)
  Receive Date: 20101201
  Receipt Date: 20101125
  Transmission Date: 20110411
  Serious: Yes (Hospitalization)
  Sender: FDA-Public Use
  Company Number: FR-PFIZER INC-2006144302

PATIENT
  Age: 62 Year
  Sex: Male
  Weight: 70 kg

DRUGS (2)
  1. SUNITINIB MALATE [Suspect]
     Indication: METASTATIC RENAL CELL CARCINOMA
     Dosage: 25 MG, 1X/DAY
     Route: 048
     Dates: start: 20051128
  2. FLUINDIONE [Suspect]
     Indication: THROMBOSIS
     Dates: start: 20061114, end: 20061120

REACTIONS (9)
  - ANAEMIA [None]
  - BLOOD UREA INCREASED [None]
  - COAGULOPATHY [None]
  - COLONIC OBSTRUCTION [None]
  - HYPERCREATININAEMIA [None]
  - HYPOCALCAEMIA [None]
  - HYPOKALAEMIA [None]
  - INTERNATIONAL NORMALISED RATIO INCREASED [None]
  - THROMBOSIS [None]
